FAERS Safety Report 22380597 (Version 1)
Quarter: 2023Q2

REPORT INFORMATION
  Report Type: Spontaneous
  Country: US (occurrence: US)
  Receive Date: 20230529
  Receipt Date: 20230529
  Transmission Date: 20230722
  Serious: Yes (Other)
  Sender: FDA-Public Use
  Company Number: US-009507513-2305USA008467

PATIENT
  Age: 57 Year
  Sex: Male

DRUGS (1)
  1. TICE BCG [Suspect]
     Active Substance: BACILLUS CALMETTE-GUERIN SUBSTRAIN TICE LIVE ANTIGEN
     Indication: Bladder cancer
     Dosage: UNK

REACTIONS (5)
  - Bladder cancer recurrent [Unknown]
  - Anxiety [Unknown]
  - Frustration tolerance decreased [Unknown]
  - Product availability issue [Unknown]
  - Product dose omission issue [Unknown]
